FAERS Safety Report 20576068 (Version 2)
Quarter: 2022Q1

REPORT INFORMATION
  Report Type: Spontaneous
  Country: US (occurrence: US)
  Receive Date: 20220310
  Receipt Date: 20220324
  Transmission Date: 20220424
  Serious: Yes (Other)
  Sender: FDA-Public Use
  Company Number: US-MLMSERVICE-20220224-3397537-1

PATIENT
  Age: 36 Year
  Sex: Male

DRUGS (4)
  1. VENLAFAXINE [Interacting]
     Active Substance: VENLAFAXINE HYDROCHLORIDE
     Indication: Product used for unknown indication
     Dosage: 150 MILLIGRAM, OD
     Route: 065
  2. QUETIAPINE FUMARATE [Interacting]
     Active Substance: QUETIAPINE FUMARATE
     Indication: Product used for unknown indication
     Dosage: 300 MILLIGRAM, OD
     Route: 065
  3. HERBALS\MITRAGYNINE [Interacting]
     Active Substance: HERBALS\MITRAGYNINE
     Indication: Product used for unknown indication
     Dosage: 0.75 G X 120 CAPSULES
     Route: 065
  4. HERBALS\MITRAGYNINE [Interacting]
     Active Substance: HERBALS\MITRAGYNINE
     Dosage: 15 CAPSULES
     Route: 065

REACTIONS (6)
  - Drug interaction [Recovered/Resolved]
  - Drug level above therapeutic [Recovered/Resolved]
  - Herbal interaction [Recovered/Resolved]
  - Electrocardiogram abnormal [Recovered/Resolved]
  - Serotonin syndrome [Recovered/Resolved]
  - Dizziness [Recovered/Resolved]
